FAERS Safety Report 8792670 (Version 1)
Quarter: 2012Q4

REPORT INFORMATION
  Report Type: 
  Country: US (occurrence: US)
  Receive Date: 20120918
  Receipt Date: 20120918
  Transmission Date: 20130627
  Serious: Yes (Hospitalization)
  Sender: FDA-Public Use
  Company Number: US-GLAXOSMITHKLINE-A0857526A

PATIENT
  Age: 63 Year
  Sex: Female

DRUGS (1)
  1. AVANDIA [Suspect]
     Indication: DIABETES MELLITUS
     Route: 048
     Dates: start: 20000801

REACTIONS (7)
  - Asthma [Not Recovered/Not Resolved]
  - Cardiac disorder [Unknown]
  - Bone disorder [Unknown]
  - Affect lability [Unknown]
  - Dyspnoea [Unknown]
  - Depression [Unknown]
  - Pain in extremity [Unknown]
